FAERS Safety Report 17963835 (Version 2)
Quarter: 2020Q3

REPORT INFORMATION
  Report Type: Report from Study
  Country: US (occurrence: US)
  Receive Date: 20200630
  Receipt Date: 20200705
  Transmission Date: 20201103
  Serious: Yes (Other)
  Sender: FDA-Public Use
  Company Number: US-ASTRAZENECA-2020SE81587

PATIENT
  Sex: Male

DRUGS (1)
  1. CALQUENCE [Suspect]
     Active Substance: ACALABRUTINIB
     Indication: CHRONIC LYMPHOCYTIC LEUKAEMIA
     Dosage: 100 MG, TWO TIMES A DAY, AT 7AM AND 7PM WITH FOOD
     Route: 048

REACTIONS (4)
  - Urticaria [Recovering/Resolving]
  - Rash [Unknown]
  - Weight decreased [Unknown]
  - Type 2 diabetes mellitus [Unknown]
